FAERS Safety Report 5361664-1 (Version None)
Quarter: 2007Q2

REPORT INFORMATION
  Report Type: 
  Country: None (occurrence: None)
  Receive Date: 20070615
  Receipt Date: 20070615
  Transmission Date: 20071010
  Serious: Yes (Hospitalization)
  Sender: FDA-Public Use
  Company Number: None

PATIENT
  Age: 81 Year
  Sex: Male
  Weight: 89 kg

DRUGS (2)
  1. DOBUTAMINE HCL [Suspect]
     Indication: CARDIAC FAILURE CONGESTIVE
     Dosage: 5MCG/KG/MIN OVER 8 HOURS WEEKLY IV DRIP
     Route: 041
     Dates: start: 20070605, end: 20070605
  2. DOBUTAMINE HCL [Suspect]

REACTIONS (6)
  - BLOOD CULTURE POSITIVE [None]
  - ENTEROCOCCAL INFECTION [None]
  - NAUSEA [None]
  - PHARMACEUTICAL PRODUCT COMPLAINT [None]
  - SEPSIS [None]
  - VOMITING [None]
